FAERS Safety Report 4647966-2 (Version None)
Quarter: 2005Q2

REPORT INFORMATION
  Report Type: 
  Country: None (occurrence: None)
  Receive Date: 20050331
  Receipt Date: 20041221
  Transmission Date: 20051028
  Serious: No
  Sender: FDA-Public Use
  Company Number: 04P-163-0284120-00

PATIENT
  Age: 4 Year
  Sex: Female
  Weight: 20.4119 kg

DRUGS (8)
  1. HUMIRA [Suspect]
     Indication: JUVENILE ARTHRITIS
     Dosage: 20 MG, 1 IN 1 WK, SUBCUTANEOUS
     Route: 058
     Dates: start: 20041211
  2. MEHTOTREXATE SODIUM [Concomitant]
  3. SULFASALAZINE [Concomitant]
  4. PREDNISONE TAB [Concomitant]
  5. FOLIC ACID [Concomitant]
  6. NAPROXEN [Concomitant]
  7. IRON [Concomitant]
  8. MULTI-VITAMINS [Concomitant]

REACTIONS (1)
  - INJECTION SITE IRRITATION [None]
